FAERS Safety Report 7968283 (Version 4)
Quarter: 2013Q3

REPORT INFORMATION
  Report Type: Spontaneous
  Country: US (occurrence: US)
  Receive Date: 20110601
  Receipt Date: 20130916
  Transmission Date: 20140515
  Serious: Yes (Hospitalization, Other)
  Sender: FDA-Public Use
  Company Number: US-US-EMD SERONO, INC.-7008071

PATIENT
  Age: 51 Year
  Sex: Female
  Weight: 102 kg

DRUGS (4)
  1. GABAPENTIN [Concomitant]
     Indication: DYSPHAGIA
  2. REBIF [Suspect]
     Indication: MULTIPLE SCLEROSIS
     Route: 058
     Dates: start: 20100211
  3. REBIF [Suspect]
     Route: 058
  4. TIZANIDINE [Concomitant]
     Indication: PRODUCT USED FOR UNKNOWN INDICATION

REACTIONS (15)
  - Endometrial hyperplasia [Unknown]
  - Postmenopausal haemorrhage [Recovered/Resolved]
  - Loss of consciousness [Unknown]
  - Multiple sclerosis relapse [Unknown]
  - Dizziness [Recovered/Resolved]
  - Mood swings [Unknown]
  - Tooth erosion [Recovered/Resolved]
  - Vitamin D deficiency [Unknown]
  - Vitamin B complex deficiency [Unknown]
  - Muscle injury [Unknown]
  - Muscle spasms [Recovered/Resolved]
  - Chills [Recovered/Resolved]
  - Pyrexia [Recovered/Resolved]
  - Headache [Not Recovered/Not Resolved]
  - Injection site pain [Unknown]
